FAERS Safety Report 11952355 (Version 2)
Quarter: 2016Q1

REPORT INFORMATION
  Report Type: Report from Study
  Country: DE (occurrence: DE)
  Receive Date: 20160126
  Receipt Date: 20160212
  Transmission Date: 20160526
  Serious: Yes (Death)
  Sender: FDA-Public Use
  Company Number: DE-ACTELION-A-US2016-130404

PATIENT
  Age: 48 Year
  Sex: Female
  Weight: 30.84 kg

DRUGS (9)
  1. FUROSEMIDE. [Concomitant]
     Active Substance: FUROSEMIDE
  2. VENTAVIS [Suspect]
     Active Substance: ILOPROST
     Indication: PULMONARY HYPERTENSION
     Dosage: 2.5 MCG, 6 TIMES A DAY
     Route: 055
     Dates: start: 20151102
  3. DEKRISTOL [Concomitant]
     Active Substance: CHOLECALCIFEROL
  4. OCTAGAM IMMUNE GLOBULIN (HUMAN) [Concomitant]
     Active Substance: HUMAN IMMUNOGLOBULIN G
  5. VITAMIN B12 [Concomitant]
     Active Substance: CYANOCOBALAMIN
  6. OPSUMIT [Concomitant]
     Active Substance: MACITENTAN
  7. ADCIRCA [Concomitant]
     Active Substance: TADALAFIL
  8. L-THYROXINE [Concomitant]
     Active Substance: LEVOTHYROXINE
  9. PANTOZOL [Concomitant]
     Active Substance: PANTOPRAZOLE SODIUM

REACTIONS (1)
  - Pulmonary hypertension [Fatal]

NARRATIVE: CASE EVENT DATE: 20151222
